FAERS Safety Report 5628462-2 (Version None)
Quarter: 2008Q1

REPORT INFORMATION
  Report Type: 
  Country: None (occurrence: None)
  Receive Date: 20080131
  Receipt Date: 20071121
  Transmission Date: 20080703
  Serious: No
  Sender: FDA-Public Use
  Company Number: 163-21880-07101626

PATIENT
  Age: 61 Year
  Sex: Female

DRUGS (3)
  1. REVLIMID [Suspect]
     Indication: MULTIPLE MYELOMA
     Dosage: 15 MG, DAILY X21 DAYS, ORAL ; 20 MG, 2 IN 1 D, ORAL
     Route: 048
     Dates: start: 20070326, end: 20070901
  2. REVLIMID [Suspect]
     Indication: MULTIPLE MYELOMA
     Dosage: 15 MG, DAILY X21 DAYS, ORAL ; 20 MG, 2 IN 1 D, ORAL
     Route: 048
     Dates: start: 20071024
  3. ASPIRIN [Concomitant]

REACTIONS (6)
  - CONTUSION [None]
  - NEUROPATHY PERIPHERAL [None]
  - NEUTROPENIA [None]
  - PANCYTOPENIA [None]
  - SKIN LESION [None]
  - THROMBOCYTOPENIA [None]
